FAERS Safety Report 17281545 (Version 1)
Quarter: 2020Q1

REPORT INFORMATION
  Report Type: Spontaneous
  Country: US (occurrence: US)
  Receive Date: 20191227
  Receipt Date: 20191227
  Transmission Date: 20200409
  Serious: Yes (Hospitalization)
  Sender: FDA-Public Use
  Company Number: None

PATIENT
  Age: 29 Year
  Sex: Female

DRUGS (3)
  1. STELARA [Suspect]
     Active Substance: USTEKINUMAB
     Indication: PSORIASIS
     Dosage: 45 MG/0.5ML SYR EVERY 12WEEKS  INJECTION?
     Dates: start: 20160607
  2. PANTOPRAZOLE TAB [Concomitant]
  3. LINSESS [Concomitant]

REACTIONS (2)
  - Condition aggravated [None]
  - Hospitalisation [None]
